FAERS Safety Report 4722047-8 (Version None)
Quarter: 2005Q3

REPORT INFORMATION
  Report Type: 
  Country: None (occurrence: None)
  Receive Date: 20050722
  Receipt Date: 20050715
  Transmission Date: 20060218
  Serious: Yes (Hospitalization)
  Sender: FDA-Public Use
  Company Number: IT-ROCHE-411014

PATIENT
  Age: 45 Year
  Sex: Female

DRUGS (6)
  1. FUZEON [Suspect]
     Indication: HIV INFECTION
     Route: 058
     Dates: start: 20040105, end: 20050627
  2. ZERIT [Concomitant]
     Route: 048
     Dates: start: 20030114, end: 20050627
  3. VIREAD [Concomitant]
     Route: 048
     Dates: start: 20030424, end: 20050627
  4. KALETRA [Concomitant]
     Route: 048
     Dates: start: 20010509, end: 20050626
  5. EPIVIR [Concomitant]
     Route: 048
     Dates: start: 20030424, end: 20050627
  6. DAPSONE [Concomitant]
     Dates: start: 19990122, end: 20050627

REACTIONS (1)
  - NON-HODGKIN'S LYMPHOMA [None]
